FAERS Safety Report 7415618-1 (Version None)
Quarter: 2011Q1

REPORT INFORMATION
  Report Type: 
  Country: None (occurrence: None)
  Receive Date: 20110317
  Receipt Date: 20110302
  Transmission Date: 20110831
  Serious: Yes (Death, Hospitalization)
  Sender: FDA-Public Use
  Company Number: 11-079

PATIENT
  Age: 87 Year
  Sex: Female

DRUGS (21)
  1. WARFARIN SODIUM [Suspect]
     Indication: DEEP VEIN THROMBOSIS
     Dosage: 3MG
     Dates: start: 20100831, end: 20100919
  2. WARFARIN SODIUM [Suspect]
     Indication: DEEP VEIN THROMBOSIS
     Dosage: 3MG
     Dates: start: 20100923, end: 20100929
  3. WARFARIN SODIUM [Suspect]
     Indication: DEEP VEIN THROMBOSIS
     Dosage: 3MG
     Dates: start: 20101005, end: 20101007
  4. OMEPRAZOLE [Concomitant]
  5. PARACETAMOL [Concomitant]
  6. TAZOCIN (PIPERACILLIN SODIUM AND TAZOBACTAM SODIUM) [Concomitant]
  7. SODIUM CHLORIDE (MOVICOL) [Concomitant]
  8. IBUPROFEN [Suspect]
     Indication: PRODUCT USED FOR UNKNOWN INDICATION
     Dosage: 600 MG (3X/DAY), ORAL
     Route: 048
     Dates: start: 20080101, end: 20100919
  9. SODIUM BICARBONATE [Concomitant]
  10. LEVOTHYROXINE SODIUM [Concomitant]
  11. FENTANYL [Concomitant]
  12. ZOPICLONE [Concomitant]
  13. MACROGOL [Concomitant]
  14. POTASSIUM CHLORIDE [Concomitant]
  15. TRIMETHOPRIM [Suspect]
     Indication: URINARY TRACT INFECTION
     Dosage: 200 MG (2X/D)
     Dates: start: 20100918
  16. FUROSEMIDE [Concomitant]
  17. FRAGMIN [Suspect]
     Indication: DEEP VEIN THROMBOSIS
     Dosage: 5000-10000 IU/D, SUBCUTANEOUS
     Route: 058
     Dates: start: 20100807, end: 20100919
  18. FRAGMIN [Suspect]
     Indication: DEEP VEIN THROMBOSIS
     Dosage: 5000-10000 IU/D, SUBCUTANEOUS
     Route: 058
     Dates: start: 20101005
  19. DIHYDROCODEINE BITARTRATE INJ [Concomitant]
  20. CO-AMOXICLAV (AMOXICILLIN AND POTASSIUM CLAVULANATE) [Concomitant]
  21. VITAMIN K TAB [Concomitant]

REACTIONS (15)
  - ANTICOAGULATION DRUG LEVEL ABOVE THERAPEUTIC [None]
  - INJECTION SITE HAEMORRHAGE [None]
  - DYSPHAGIA [None]
  - URINARY TRACT INFECTION [None]
  - PLATELET COUNT INCREASED [None]
  - GENERAL PHYSICAL HEALTH DETERIORATION [None]
  - SOMNOLENCE [None]
  - HAEMATOMA [None]
  - INTERNATIONAL NORMALISED RATIO INCREASED [None]
  - BLOOD PRESSURE DECREASED [None]
  - MALAISE [None]
  - CONTUSION [None]
  - LOWER RESPIRATORY TRACT INFECTION [None]
  - DRUG ADMINISTRATION ERROR [None]
  - DEEP VEIN THROMBOSIS [None]
